FAERS Safety Report 5021869-6 (Version None)
Quarter: 2006Q2

REPORT INFORMATION
  Report Type: 
  Country: None (occurrence: None)
  Receive Date: 20060609
  Receipt Date: 20060605
  Transmission Date: 20061013
  Serious: Yes (Death)
  Sender: FDA-Public Use
  Company Number: US-JNJFOC-20060600908

PATIENT
  Age: 5 Month
  Sex: Female

DRUGS (3)
  1. TYLENOL (CAPLET) [Suspect]
     Indication: NASOPHARYNGITIS
  2. TYLENOL (CAPLET) [Suspect]
     Indication: TEETHING
  3. TYLENOL (CAPLET) [Suspect]
     Indication: PYREXIA

REACTIONS (1)
  - DEATH [None]
